FAERS Safety Report 23542182 (Version 1)
Quarter: 2024Q1

REPORT INFORMATION
  Report Type: Spontaneous
  Country: US (occurrence: None)
  Receive Date: 20240220
  Receipt Date: 20240220
  Transmission Date: 20240410
  Serious: No
  Sender: FDA-Public Use
  Company Number: US-ROCHE-3423808

PATIENT
  Age: 74 Year
  Sex: Female
  Weight: 50.848 kg

DRUGS (2)
  1. ROZLYTREK [Suspect]
     Active Substance: ENTRECTINIB
     Indication: Colon cancer stage IV
     Dosage: YES
     Route: 065
     Dates: start: 20230915
  2. ROZLYTREK [Suspect]
     Active Substance: ENTRECTINIB
     Indication: Colorectal cancer metastatic
     Dosage: TAKE 3 CAPSULE(S) BY MOUTH DAILY
     Route: 048

REACTIONS (3)
  - Off label use [Unknown]
  - Intentional product misuse [Unknown]
  - Hypersensitivity [Unknown]

NARRATIVE: CASE EVENT DATE: 20230915
